FAERS Safety Report 7622039-5 (Version None)
Quarter: 2011Q3

REPORT INFORMATION
  Report Type: 
  Country: None (occurrence: None)
  Receive Date: 20110720
  Receipt Date: 20101216
  Transmission Date: 20111222
  Serious: Yes (Hospitalization, Other)
  Sender: FDA-Public Use
  Company Number: US-BAYER-201029354NA

PATIENT
  Age: 30 Year
  Sex: Female
  Weight: 63.492 kg

DRUGS (3)
  1. YAZ [Suspect]
     Indication: MENSTRUAL CYCLE MANAGEMENT
  2. YAZ [Suspect]
     Indication: ORAL CONTRACEPTION
     Dosage: UNK UNK, QD
     Route: 048
     Dates: start: 20080327, end: 20080524
  3. YAZ [Suspect]
     Indication: MENORRHAGIA

REACTIONS (6)
  - PAIN IN EXTREMITY [None]
  - ATELECTASIS [None]
  - PULMONARY EMBOLISM [None]
  - CHEST PAIN [None]
  - INFARCTION [None]
  - BACK PAIN [None]
